FAERS Safety Report 12428965 (Version 2)
Quarter: 2018Q1

REPORT INFORMATION
  Report Type: Spontaneous
  Country: DK (occurrence: DK)
  Receive Date: 20160602
  Receipt Date: 20180219
  Transmission Date: 20180508
  Serious: Yes (Disabling)
  Sender: FDA-Public Use
  Company Number: DK-JNJFOC-20160520009

PATIENT
  Age: 41 Year
  Sex: Female

DRUGS (1)
  1. SIMPONI [Suspect]
     Active Substance: GOLIMUMAB
     Indication: PSORIATIC ARTHROPATHY
     Route: 058
     Dates: start: 20140429, end: 20140818

REACTIONS (10)
  - Fatigue [Not Recovered/Not Resolved]
  - CSF white blood cell count increased [Recovered/Resolved]
  - Impaired work ability [Unknown]
  - Multiple sclerosis [Not Recovered/Not Resolved]
  - Pain in extremity [Recovered/Resolved]
  - Intracranial pressure increased [Unknown]
  - Visual impairment [Recovered/Resolved]
  - Sensory disturbance [Recovered/Resolved]
  - Coordination abnormal [Recovered/Resolved]
  - Loss of personal independence in daily activities [Unknown]

NARRATIVE: CASE EVENT DATE: 20140514
